FAERS Safety Report 8472703-3 (Version None)
Quarter: 2012Q2

REPORT INFORMATION
  Report Type: 
  Country: None (occurrence: None)
  Receive Date: 20120627
  Receipt Date: 20120619
  Transmission Date: 20120825
  Serious: Yes (Disabling, Other)
  Sender: FDA-Public Use
  Company Number: PHHY2012CO042519

PATIENT
  Age: 59 Year
  Sex: Male

DRUGS (3)
  1. TRAZODONE HCL [Concomitant]
     Dosage: UNK UKN, UNK
  2. STALEVO 100 [Suspect]
     Indication: PARKINSON'S DISEASE
     Dosage: 5 DF, PER DAY
     Route: 048
     Dates: start: 20050101
  3. MIRAPEX [Concomitant]
     Dosage: UNK UKN, UNK

REACTIONS (3)
  - GAIT DISTURBANCE [None]
  - DYSKINESIA [None]
  - MUSCULOSKELETAL STIFFNESS [None]
